FAERS Safety Report 21229724 (Version 1)
Quarter: 2022Q3

REPORT INFORMATION
  Report Type: Spontaneous
  Country: US (occurrence: US)
  Receive Date: 20220818
  Receipt Date: 20220818
  Transmission Date: 20221027
  Serious: No
  Sender: FDA-Public Use
  Company Number: US-MYLANLABS-2022M1086358

PATIENT
  Sex: Male

DRUGS (1)
  1. FENTANYL TRANSDERMAL SYSTEM [Suspect]
     Active Substance: FENTANYL
     Indication: Product used for unknown indication
     Dosage: 50 MICROGRAM, QH (EVERY 72 HOURS)
     Route: 062

REACTIONS (4)
  - Dizziness [Unknown]
  - Malaise [Unknown]
  - Product substitution issue [Unknown]
  - Drug ineffective [Unknown]
